FAERS Safety Report 6345114-4 (Version None)
Quarter: 2009Q3

REPORT INFORMATION
  Report Type: 
  Country: None (occurrence: None)
  Receive Date: 20090909
  Receipt Date: 20070523
  Transmission Date: 20100115
  Serious: Yes (Other)
  Sender: FDA-Public Use
  Company Number: US-ASTRAZENECA-2006UW01800

PATIENT
  Age: 18589 Day
  Sex: Male
  Weight: 143.8 kg

DRUGS (14)
  1. SEROQUEL [Suspect]
     Indication: POST-TRAUMATIC STRESS DISORDER
     Dosage: 25-800 MG
     Route: 048
     Dates: start: 20020109
  2. SEROQUEL [Suspect]
     Dosage: 100 MG TO 600 MG
     Route: 048
     Dates: start: 20020101
  3. ZYPREXA [Suspect]
     Indication: POST-TRAUMATIC STRESS DISORDER
     Dosage: 2.5-5 MG
     Route: 048
     Dates: start: 19971216
  4. ZYPREXA [Suspect]
     Indication: AFFECT LABILITY
     Dosage: 2.5-5 MG
     Route: 048
     Dates: start: 19971216
  5. ZYPREXA [Suspect]
     Dosage: 2.5 MG TO 5 MG
     Route: 048
     Dates: start: 19980901, end: 20011201
  6. ZYPREXA [Suspect]
     Dosage: 2.5 MG TO 5 MG
     Route: 048
     Dates: start: 19980901, end: 20011201
  7. ALPRAZOLAM [Concomitant]
     Indication: AGITATION
     Dosage: 1.5-4 MG
     Route: 048
     Dates: start: 19960429
  8. ALPRAZOLAM [Concomitant]
     Indication: ANXIETY
     Dosage: 1.5-4 MG
     Route: 048
     Dates: start: 19960429
  9. ALPRAZOLAM [Concomitant]
     Indication: PANIC ATTACK
     Dosage: 1.5-4 MG
     Route: 048
     Dates: start: 19960429
  10. PROZAC [Concomitant]
     Indication: DEPRESSION
     Dosage: 80-100 MG
     Route: 048
     Dates: start: 19950522
  11. WELLBUTRIN SR [Concomitant]
     Dosage: 100-200 MG
     Dates: start: 20031101
  12. MOTRIN [Concomitant]
     Indication: PAIN
     Dosage: 1 TAB TID PRN, 1 TAB TID
     Route: 048
     Dates: start: 20000426
  13. MOTRIN [Concomitant]
     Indication: INFLAMMATION
     Dosage: 1 TAB TID PRN, 1 TAB TID
     Route: 048
     Dates: start: 20000426
  14. INDOMETHACIN [Concomitant]
     Route: 048
     Dates: start: 20010913

REACTIONS (4)
  - DIABETES MELLITUS [None]
  - ILL-DEFINED DISORDER [None]
  - RENAL FAILURE CHRONIC [None]
  - TUBULOINTERSTITIAL NEPHRITIS [None]
